FAERS Safety Report 8188658-5 (Version None)
Quarter: 2012Q1

REPORT INFORMATION
  Report Type: 
  Country: None (occurrence: None)
  Receive Date: 20120306
  Receipt Date: 20120302
  Transmission Date: 20120608
  Serious: Yes (Hospitalization, Other)
  Sender: FDA-Public Use
  Company Number: NL-PFIZER INC-2012057621

PATIENT
  Age: 69 Year
  Sex: Female

DRUGS (15)
  1. CARDURA [Suspect]
     Indication: HYPERTENSION
     Dosage: 4 MG, 1X/DAY
     Dates: start: 20120217
  2. INHIBIN ^ASTA MEDICA^ [Suspect]
     Dosage: 100 MG, 3X/DAY
     Dates: start: 20110101
  3. DEVARON [Concomitant]
     Dosage: UNK
  4. QUINAPRIL [Concomitant]
     Dosage: 30 MG, 1X/DAY
  5. METFORMIN HYDROCHLORIDE [Concomitant]
  6. TAMSULOSIN HCL [Suspect]
     Dosage: 0.4 MG, UNK
     Route: 048
     Dates: start: 20120209
  7. FUROSEMIDE [Concomitant]
     Dosage: 40 MG, 1X/DAY
  8. DIOVAN [Concomitant]
     Dosage: 80 MG, 1X/DAY
  9. SIMVASTATIN [Concomitant]
  10. PARACETAMOL [Concomitant]
     Dosage: 500 MG, 1X/DAY
  11. INSULIN DETEMIR [Concomitant]
  12. LACTULOSE [Concomitant]
     Dosage: 8 ML, 1X/DAY
  13. NIFEDIPINE [Suspect]
     Indication: HYPERTENSION
     Dosage: 30 MG, 1X/DAY
     Dates: start: 20111001
  14. OMEPRAZOLE [Concomitant]
     Dosage: 20 MG, 1X/DAY
  15. INSULIN ASPART [Concomitant]

REACTIONS (2)
  - MUSCLE SPASMS [None]
  - TREMOR [None]
